FAERS Safety Report 6569453-7 (Version None)
Quarter: 2010Q1

REPORT INFORMATION
  Report Type: 
  Country: None (occurrence: None)
  Receive Date: 20100204
  Receipt Date: 20100201
  Transmission Date: 20100710
  Serious: Yes (Other)
  Sender: FDA-Public Use
  Company Number: FR-EISAI INC.-E2020-05838-SPO-FR

PATIENT
  Age: 80 Year
  Sex: Female
  Weight: 55 kg

DRUGS (11)
  1. ARICEPT [Suspect]
     Route: 048
     Dates: start: 20091223, end: 20091227
  2. ARICEPT [Interacting]
     Route: 048
     Dates: start: 20100103, end: 20100101
  3. ARICEPT [Interacting]
     Route: 048
     Dates: start: 20100101, end: 20100101
  4. ARICEPT [Interacting]
     Route: 048
     Dates: start: 20100101
  5. SINEMET [Interacting]
     Indication: PARKINSON'S DISEASE
     Route: 048
     Dates: start: 20080101
  6. MOTILIUM [Concomitant]
     Indication: NAUSEA
     Route: 048
  7. MOTILIUM [Concomitant]
     Indication: VOMITING
  8. MOVICOL [Concomitant]
     Dosage: UNKNOWN
     Route: 048
  9. ZOLOFT [Concomitant]
     Indication: DEPRESSION
     Route: 048
     Dates: start: 20100110
  10. PHYTOTHERAPY (OLIVE TREE) [Concomitant]
     Route: 048
     Dates: start: 20080101
  11. ORACAL D 3 [Concomitant]
     Indication: OSTEOPOROSIS
     Route: 048
     Dates: start: 20050101

REACTIONS (3)
  - DIARRHOEA [None]
  - DRUG INTERACTION [None]
  - NAUSEA [None]
